FAERS Safety Report 16951609 (Version 1)
Quarter: 2019Q4

REPORT INFORMATION
  Report Type: Spontaneous
  Country: GB (occurrence: SE)
  Receive Date: 20191023
  Receipt Date: 20191023
  Transmission Date: 20200122
  Serious: Yes (Death, Hospitalization)
  Sender: FDA-Public Use
  Company Number: SE-ASTELLAS-2019US041757

PATIENT
  Age: 58 Year
  Sex: Female

DRUGS (16)
  1. CARBOPLATIN. [Concomitant]
     Active Substance: CARBOPLATIN
     Indication: EGFR GENE MUTATION
     Dosage: UNK, UNKNOWN FREQ.
     Route: 065
     Dates: start: 20170802
  2. DOCETAXEL. [Concomitant]
     Active Substance: DOCETAXEL
     Indication: LUNG NEOPLASM MALIGNANT
     Dosage: UNK, UNKNOWN FREQ.
     Route: 065
     Dates: start: 20181205, end: 20190307
  3. TARCEVA [Suspect]
     Active Substance: ERLOTINIB HYDROCHLORIDE
     Indication: EGFR GENE MUTATION
  4. TEMOZOLOMIDE. [Concomitant]
     Active Substance: TEMOZOLOMIDE
     Indication: EGFR GENE MUTATION
  5. TARCEVA [Suspect]
     Active Substance: ERLOTINIB HYDROCHLORIDE
     Indication: NON-SMALL CELL LUNG CANCER
     Route: 048
     Dates: start: 20130806, end: 20190923
  6. AVASTIN [Suspect]
     Active Substance: BEVACIZUMAB
     Indication: LUNG NEOPLASM MALIGNANT
     Dosage: 10 MG, OTHER (EVERY OTHER WEEK)
     Route: 042
     Dates: start: 20190527, end: 20190708
  7. CARBOPLATIN. [Concomitant]
     Active Substance: CARBOPLATIN
     Indication: NON-SMALL CELL LUNG CANCER
     Dosage: UNK, UNKNOWN FREQ.
     Route: 065
     Dates: start: 20150923, end: 2016
  8. AFATINIB [Concomitant]
     Active Substance: AFATINIB
     Indication: EGFR GENE MUTATION
  9. DOCETAXEL. [Concomitant]
     Active Substance: DOCETAXEL
     Indication: EGFR GENE MUTATION
  10. PEMETREXED. [Concomitant]
     Active Substance: PEMETREXED
     Indication: LUNG NEOPLASM MALIGNANT
     Dosage: UNK, UNKNOWN FREQ.
     Route: 065
     Dates: start: 20150925, end: 20160307
  11. PEMETREXED. [Concomitant]
     Active Substance: PEMETREXED
     Indication: EGFR GENE MUTATION
     Dosage: UNK, UNKNOWN FREQ.
     Route: 065
     Dates: start: 20170802
  12. PARACETAMOL [Concomitant]
     Active Substance: ACETAMINOPHEN
     Indication: PRODUCT USED FOR UNKNOWN INDICATION
     Dosage: UNK, UNKNOWN FREQ.
     Route: 065
  13. ZOMETA [Concomitant]
     Active Substance: ZOLEDRONIC ACID
     Indication: PRODUCT USED FOR UNKNOWN INDICATION
     Dosage: UNK, UNKNOWN FREQ.
     Route: 065
  14. TEMOZOLOMIDE. [Concomitant]
     Active Substance: TEMOZOLOMIDE
     Indication: LUNG NEOPLASM MALIGNANT
     Dosage: UNK, UNKNOWN FREQ.
     Route: 065
     Dates: start: 20190307, end: 20190708
  15. AVASTIN [Suspect]
     Active Substance: BEVACIZUMAB
     Indication: EGFR GENE MUTATION
  16. AFATINIB [Concomitant]
     Active Substance: AFATINIB
     Indication: LUNG NEOPLASM MALIGNANT
     Dosage: UNK UNK, UNKNOWN FREQ.
     Route: 065
     Dates: start: 20171209

REACTIONS (8)
  - Diarrhoea [Unknown]
  - Pyrexia [Recovered/Resolved]
  - Rash [Unknown]
  - Fatigue [Unknown]
  - Nausea [Unknown]
  - Back pain [Unknown]
  - Dizziness [Recovered/Resolved]
  - Decreased appetite [Unknown]

NARRATIVE: CASE EVENT DATE: 20150511
